FAERS Safety Report 7675546-3 (Version None)
Quarter: 2011Q3

REPORT INFORMATION
  Report Type: 
  Country: None (occurrence: None)
  Receive Date: 20110810
  Receipt Date: 20110728
  Transmission Date: 20111222
  Serious: Yes (Other)
  Sender: FDA-Public Use
  Company Number: PHHY2011BR68235

PATIENT
  Sex: Female
  Weight: 70 kg

DRUGS (6)
  1. CORPITOGEL G [Concomitant]
     Indication: ERYSIPELAS
     Dosage: 1 TABLET AT NIGHT
     Route: 048
     Dates: start: 20101201
  2. DIOVAN [Suspect]
     Dosage: 320 MG, HALF TABLET A DAY
     Route: 048
  3. GRANISETRON [Concomitant]
     Dosage: 150 MG, UNK
  4. APRESOLINE [Suspect]
     Dosage: UNK UKN, UNK
  5. EXFORGE HCT [Suspect]
     Dosage: UNK UKN, UNK
     Dates: end: 20110727
  6. ASPIRIN [Concomitant]
     Dosage: 100 MG, 2 TABLETS AT NIGHT
     Route: 048
     Dates: end: 20101001

REACTIONS (7)
  - HAEMORRHAGE [None]
  - INCORRECT DOSE ADMINISTERED [None]
  - BLOOD PRESSURE INCREASED [None]
  - ERYSIPELAS [None]
  - OEDEMA PERIPHERAL [None]
  - PURPURA [None]
  - PIGMENTATION DISORDER [None]
